FAERS Safety Report 22156530 (Version 1)
Quarter: 2023Q1

REPORT INFORMATION
  Report Type: Spontaneous
  Country: US (occurrence: US)
  Receive Date: 20230330
  Receipt Date: 20230330
  Transmission Date: 20230417
  Serious: No
  Sender: FDA-Public Use
  Company Number: US-GLAND PHARMA LIMITED-2022US005381

PATIENT
  Sex: Male

DRUGS (3)
  1. BROMFENAC OPHTHALMIC SOLUTION [Suspect]
     Active Substance: BROMFENAC SODIUM
     Indication: Cataract operation
     Dosage: UNK
     Route: 047
     Dates: start: 20221116
  2. OFLOXACIN [Concomitant]
     Active Substance: OFLOXACIN
     Indication: Cataract operation
     Dosage: UNK
     Route: 047
  3. PREDNISOLONE [Concomitant]
     Active Substance: PREDNISOLONE
     Indication: Cataract operation
     Dosage: UNK
     Route: 047

REACTIONS (2)
  - Eye irritation [Unknown]
  - Eye pain [Unknown]
